FAERS Safety Report 21451540 (Version 1)
Quarter: 2022Q4

REPORT INFORMATION
  Report Type: Spontaneous
  Country: IT (occurrence: IT)
  Receive Date: 20221013
  Receipt Date: 20221013
  Transmission Date: 20230113
  Serious: Yes (Life-Threatening, Hospitalization)
  Sender: FDA-Public Use
  Company Number: None

PATIENT
  Age: 74 Year
  Sex: Male
  Weight: 72 kg

DRUGS (2)
  1. BISOPROLOL [Suspect]
     Active Substance: BISOPROLOL
     Indication: Hypertension
     Dosage: 2.5 MG (FREQUENCY OF ADMINISTRATION IS UNKNOWN) , BISOPROLOLO, TOOK ABOUT 50 TABLETS OF BISOPROLOL 2
     Dates: start: 20220921, end: 20220921
  2. SOTALOL HYDROCHLORIDE [Suspect]
     Active Substance: SOTALOL HYDROCHLORIDE
     Indication: Hypertension
     Dosage: 80MG X ONCE / DAY  , SOTALOLO CLORIDRATO, TOOK 40 TABLETS OF SOTALOL 80MG
     Dates: start: 20220921, end: 20220921

REACTIONS (2)
  - Toxicity to various agents [Not Recovered/Not Resolved]
  - Intentional overdose [Recovered/Resolved]

NARRATIVE: CASE EVENT DATE: 20220921
